FAERS Safety Report 6991426-0 (Version None)
Quarter: 2010Q3

REPORT INFORMATION
  Report Type: 
  Country: None (occurrence: None)
  Receive Date: 20100916
  Receipt Date: 20090831
  Transmission Date: 20110219
  Serious: No
  Sender: FDA-Public Use
  Company Number: US-WYE-H10778109

PATIENT
  Age: 58 Year
  Sex: Female
  Weight: 59.02 kg

DRUGS (3)
  1. ADVIL PM [Suspect]
     Indication: INSOMNIA
     Dosage: 2 CAPLETS AS NEEDED
     Route: 048
     Dates: start: 20090701, end: 20090829
  2. SYNTHROID [Concomitant]
  3. INDERAL [Concomitant]

REACTIONS (1)
  - PAIN IN EXTREMITY [None]
